FAERS Safety Report 4903442-0 (Version None)
Quarter: 2006Q1

REPORT INFORMATION
  Report Type: 
  Country: None (occurrence: None)
  Receive Date: 20060206
  Receipt Date: 20060206
  Transmission Date: 20060701
  Serious: Yes (Other)
  Sender: FDA-Public Use
  Company Number: None

PATIENT
  Age: 36 Year
  Sex: Male
  Weight: 90.7194 kg

DRUGS (2)
  1. FLUOXETINE HCL [Suspect]
     Indication: DEPRESSION
     Dosage: 20 MG 1X PER DAY PO
     Route: 048
     Dates: start: 20050110, end: 20060203
  2. FLUOXETINE HCL [Suspect]
     Indication: PROPHYLAXIS
     Dosage: 20 MG 1X PER DAY PO
     Route: 048
     Dates: start: 20050110, end: 20060203

REACTIONS (2)
  - DRUG WITHDRAWAL SYNDROME [None]
  - PHARMACEUTICAL PRODUCT COMPLAINT [None]
